FAERS Safety Report 8249801-2 (Version None)
Quarter: 2012Q1

REPORT INFORMATION
  Report Type: 
  Country: None (occurrence: None)
  Receive Date: 20120327
  Receipt Date: 20120316
  Transmission Date: 20120608
  Serious: Yes (Hospitalization)
  Sender: FDA-Public Use
  Company Number: 2012SP013273

PATIENT
  Age: 38 Year
  Sex: Male

DRUGS (2)
  1. TEMODAL [Suspect]
     Indication: GLIOBLASTOMA MULTIFORME
     Dosage: 150 MG;;PO
     Route: 048
     Dates: start: 20110830, end: 20111101
  2. KEPPRA [Concomitant]

REACTIONS (1)
  - INTERSTITIAL LUNG DISEASE [None]
